FAERS Safety Report 4597281-0 (Version None)
Quarter: 2005Q1

REPORT INFORMATION
  Report Type: 
  Country: None (occurrence: None)
  Receive Date: 20050225
  Receipt Date: 20050225
  Transmission Date: 20050727
  Serious: No
  Sender: FDA-Public Use
  Company Number: None

PATIENT
  Sex: Female
  Weight: 102.9665 kg

DRUGS (8)
  1. TAXOTERE [Suspect]
     Indication: BREAST CANCER
     Dosage: 157MG  OVER 1 HOUR  INTRAVENOUS
     Route: 042
     Dates: start: 20050224, end: 20050224
  2. PREMEDS [Concomitant]
  3. FLUSH SOLUTION [Concomitant]
  4. ALOXI [Concomitant]
  5. DECADRON [Concomitant]
  6. DIPHENHYDRAMINE HCL [Concomitant]
  7. CIMETIDINE [Concomitant]
  8. NS [Concomitant]

REACTIONS (6)
  - APHASIA [None]
  - BLOOD PRESSURE INCREASED [None]
  - CONVULSION [None]
  - HYPERVENTILATION [None]
  - MUSCLE RIGIDITY [None]
  - NAUSEA [None]
